FAERS Safety Report 23614092 (Version 2)
Quarter: 2024Q1

REPORT INFORMATION
  Report Type: Report from Study
  Country: CA (occurrence: CA)
  Receive Date: 20240310
  Receipt Date: 20240320
  Transmission Date: 20240410
  Serious: Yes (Hospitalization, Other)
  Sender: FDA-Public Use
  Company Number: CA-JNJFOC-20180802343

PATIENT
  Sex: Male

DRUGS (1)
  1. IMBRUVICA [Suspect]
     Active Substance: IBRUTINIB
     Indication: Chronic lymphocytic leukaemia
     Dosage: STRENGTH = 140 MG
     Route: 048

REACTIONS (4)
  - Surgery [Unknown]
  - Restless legs syndrome [Unknown]
  - Therapy cessation [Unknown]
  - Hospitalisation [Unknown]
